FAERS Safety Report 8557596 (Version 4)
Quarter: 2013Q3

REPORT INFORMATION
  Report Type: Spontaneous
  Country: JP (occurrence: None)
  Receive Date: 20120504
  Receipt Date: 20130920
  Transmission Date: 20140515
  Serious: Yes (Death)
  Sender: FDA-Public Use
  Company Number: ADR-2012-00811

PATIENT
  Age: 70 Year
  Sex: Female

DRUGS (1)
  1. GABALON INTRATHECAL [Suspect]
     Indication: CEREBRAL PALSY
     Dosage: 50 MCG/DAY

REACTIONS (1)
  - Death [None]
